FAERS Safety Report 6395574-8 (Version None)
Quarter: 2009Q4

REPORT INFORMATION
  Report Type: 
  Country: None (occurrence: None)
  Receive Date: 20091009
  Receipt Date: 20090930
  Transmission Date: 20100525
  Serious: Yes (Other)
  Sender: FDA-Public Use
  Company Number: US-AMGEN-KDL367034

PATIENT
  Sex: Female

DRUGS (4)
  1. VECTIBIX [Suspect]
     Indication: COLORECTAL CANCER
     Dates: start: 20090901, end: 20090915
  2. FOLINIC ACID [Concomitant]
  3. FLUORO-URACIL [Concomitant]
  4. OXALIPLATIN [Concomitant]

REACTIONS (11)
  - ACNE [None]
  - DRY SKIN [None]
  - ERYTHEMA [None]
  - FACIAL PAIN [None]
  - PRURITUS [None]
  - RASH PUSTULAR [None]
  - SCAB [None]
  - SKIN HAEMORRHAGE [None]
  - SKIN SWELLING [None]
  - SKIN TOXICITY [None]
  - URTICARIA [None]
